FAERS Safety Report 7368837-7 (Version None)
Quarter: 2011Q1

REPORT INFORMATION
  Report Type: 
  Country: None (occurrence: None)
  Receive Date: 20110304
  Receipt Date: 20101029
  Transmission Date: 20110831
  Serious: Yes (Life-Threatening)
  Sender: FDA-Public Use
  Company Number: CLOF-10453

PATIENT
  Age: 79 Year
  Sex: Male
  Weight: 70.2 kg

DRUGS (7)
  1. CYTARABINE [Suspect]
     Indication: MYELOID LEUKAEMIA
     Dosage: 1000 MG/M2, QDX5, INTRAVENOUS
     Route: 042
     Dates: start: 20070201, end: 20070205
  2. CLOFARABINE [Suspect]
     Indication: MYELOID LEUKAEMIA
     Dosage: 40 MG/M2, INTRAVENOUS
     Route: 042
     Dates: start: 20070201, end: 20070205
  3. NITROGLYCERIN [Concomitant]
  4. NITROGENGLYCERIN (GLYCERYL TRINITRATE) [Concomitant]
  5. METOPROLOL (METOPROLOL) [Concomitant]
  6. AMICAR [Concomitant]
  7. FENTANYL [Concomitant]

REACTIONS (16)
  - BLOOD CULTURE POSITIVE [None]
  - ENTEROCOCCUS TEST POSITIVE [None]
  - MITRAL VALVE INCOMPETENCE [None]
  - HYPOTENSION [None]
  - MYOCARDIAL INFARCTION [None]
  - ATRIOVENTRICULAR BLOCK FIRST DEGREE [None]
  - HAEMOGLOBIN DECREASED [None]
  - VENTRICULAR HYPOKINESIA [None]
  - CARDIAC FAILURE CONGESTIVE [None]
  - OEDEMA PERIPHERAL [None]
  - PLATELET COUNT DECREASED [None]
  - CHEST PAIN [None]
  - DYSPNOEA [None]
  - FLUID OVERLOAD [None]
  - HAEMATOCRIT DECREASED [None]
  - LEFT VENTRICULAR DYSFUNCTION [None]
